FAERS Safety Report 6917678-0 (Version None)
Quarter: 2010Q3

REPORT INFORMATION
  Report Type: 
  Country: None (occurrence: None)
  Receive Date: 20100810
  Receipt Date: 20100730
  Transmission Date: 20110219
  Serious: Yes (Hospitalization, Other)
  Sender: FDA-Public Use
  Company Number: US-BAXTER-2010BH014051

PATIENT
  Age: 73 Year
  Sex: Male

DRUGS (2)
  1. DIANEAL [Suspect]
     Indication: PERITONEAL DIALYSIS
     Route: 033
     Dates: start: 20090601, end: 20100601
  2. DIANEAL [Suspect]
     Route: 033
     Dates: start: 20100101

REACTIONS (6)
  - BEHAVIOURAL AND PSYCHIATRIC SYMPTOMS OF DEMENTIA [None]
  - CARDIAC DISORDER [None]
  - CARDIAC MURMUR [None]
  - MYOCARDIAL INFARCTION [None]
  - PERITONITIS [None]
  - UNDERDOSE [None]
